FAERS Safety Report 17277749 (Version 1)
Quarter: 2020Q1

REPORT INFORMATION
  Report Type: Spontaneous
  Country: DE (occurrence: DE)
  Receive Date: 20200116
  Receipt Date: 20200116
  Transmission Date: 20200409
  Serious: Yes (Other)
  Sender: FDA-Public Use
  Company Number: DE-MYLANLABS-2020M1004266

PATIENT
  Age: 40 Year
  Sex: Female

DRUGS (1)
  1. GEORGETTE-20 24+4 3 MG/0,02 MG FILMTABLETTEN [Suspect]
     Active Substance: DROSPIRENONE\ETHINYL ESTRADIOL
     Indication: CONTRACEPTION
     Dosage: 3/0,02 MG PRO TAG
     Route: 048
     Dates: start: 20190923, end: 20191014

REACTIONS (3)
  - Headache [Unknown]
  - Epilepsy [Unknown]
  - Cerebral venous sinus thrombosis [Recovering/Resolving]

NARRATIVE: CASE EVENT DATE: 201910
